FAERS Safety Report 18238275 (Version 3)
Quarter: 2021Q1

REPORT INFORMATION
  Report Type: Report from Study
  Country: BR (occurrence: BR)
  Receive Date: 20200907
  Receipt Date: 20210324
  Transmission Date: 20210419
  Serious: Yes (Other)
  Sender: FDA-Public Use
  Company Number: PHHY2018BR072829

PATIENT
  Age: 61 Year
  Sex: Female
  Weight: 83 kg

DRUGS (10)
  1. COSENTYX [Suspect]
     Active Substance: SECUKINUMAB
     Dosage: UNK, UNKNOWN
     Route: 058
     Dates: start: 20180423
  2. COSENTYX [Suspect]
     Active Substance: SECUKINUMAB
     Indication: PSORIATIC ARTHROPATHY
     Dosage: UNK, UNKNOWN
     Route: 058
     Dates: start: 20180402
  3. METHOTREXATE. [Concomitant]
     Active Substance: METHOTREXATE
     Dosage: 3 DF, QW
     Route: 065
  4. COSENTYX [Suspect]
     Active Substance: SECUKINUMAB
     Indication: PSORIASIS
     Dosage: 300 MG, (2 PENS) UNK
     Route: 058
     Dates: start: 20180326
  5. COSENTYX [Suspect]
     Active Substance: SECUKINUMAB
     Dosage: 300 MG, UNKNOWN
     Route: 058
     Dates: start: 20180523, end: 20200823
  6. COSENTYX [Suspect]
     Active Substance: SECUKINUMAB
     Dosage: UNK, UNKNOWN
     Route: 065
     Dates: start: 20210308
  7. METHOTREXATE. [Suspect]
     Active Substance: METHOTREXATE
     Indication: PRODUCT USED FOR UNKNOWN INDICATION
     Dosage: 4 DF
     Route: 065
  8. METHOTREXATE. [Suspect]
     Active Substance: METHOTREXATE
     Dosage: 2 UNK
     Route: 065
  9. COSENTYX [Suspect]
     Active Substance: SECUKINUMAB
     Dosage: UNK, QMO
     Route: 065
     Dates: start: 20210223
  10. METHOTREXATE. [Concomitant]
     Active Substance: METHOTREXATE
     Indication: PAIN
     Dosage: 4 DF, QW
     Route: 065
     Dates: start: 201808

REACTIONS (26)
  - Scratch [Not Recovered/Not Resolved]
  - Skin fissures [Unknown]
  - Retching [Not Recovered/Not Resolved]
  - Skin exfoliation [Not Recovered/Not Resolved]
  - Drug ineffective [Not Recovered/Not Resolved]
  - Dysgeusia [Recovering/Resolving]
  - Skin burning sensation [Not Recovered/Not Resolved]
  - Psoriasis [Not Recovered/Not Resolved]
  - Psoriatic arthropathy [Not Recovered/Not Resolved]
  - Nausea [Recovering/Resolving]
  - Fluid retention [Unknown]
  - Pain of skin [Not Recovered/Not Resolved]
  - Hepatic mass [Not Recovered/Not Resolved]
  - Arthralgia [Not Recovered/Not Resolved]
  - Headache [Recovered/Resolved]
  - Erythema [Not Recovered/Not Resolved]
  - Exercise tolerance decreased [Unknown]
  - Wound [Not Recovered/Not Resolved]
  - Aspartate aminotransferase [Unknown]
  - Alanine aminotransferase abnormal [Unknown]
  - Liver disorder [Not Recovered/Not Resolved]
  - Pruritus [Not Recovered/Not Resolved]
  - Weight fluctuation [Unknown]
  - Stress [Not Recovered/Not Resolved]
  - Plantar fasciitis [Unknown]
  - Headache [Not Recovered/Not Resolved]

NARRATIVE: CASE EVENT DATE: 201808
